FAERS Safety Report 5565385-1 (Version None)
Quarter: 2007Q4

REPORT INFORMATION
  Report Type: 
  Country: None (occurrence: None)
  Receive Date: 20071218
  Receipt Date: 20071207
  Transmission Date: 20080405
  Serious: Yes (Other)
  Sender: FDA-Public Use
  Company Number: GB-ELI_LILLY_AND_COMPANY-GB200712002014

PATIENT
  Sex: Female

DRUGS (2)
  1. PROZAC [Suspect]
     Dosage: 20 MG, DAILY (1/D)
  2. PROZAC [Suspect]
     Dosage: 40 MG, DAILY (1/D)

REACTIONS (2)
  - BRUXISM [None]
  - SKIN EXFOLIATION [None]
